FAERS Safety Report 16020925 (Version 1)
Quarter: 2019Q1

REPORT INFORMATION
  Report Type: Spontaneous
  Country: FR (occurrence: FR)
  Receive Date: 20190301
  Receipt Date: 20190301
  Transmission Date: 20190418
  Serious: Yes (Other)
  Sender: FDA-Public Use
  Company Number: FR-BAYER-2019-037379

PATIENT
  Sex: Female
  Weight: 72 kg

DRUGS (1)
  1. MIRENA [Suspect]
     Active Substance: LEVONORGESTREL
     Indication: CONTRACEPTION
     Dosage: 20 MCG/24HR, CONT
     Route: 015

REACTIONS (10)
  - Loss of libido [Unknown]
  - Irritability [Unknown]
  - Breast cancer [Unknown]
  - Tremor [Unknown]
  - Affective disorder [Unknown]
  - Vertigo [Unknown]
  - Sleep disorder [Unknown]
  - Anxiety [Unknown]
  - Hypoaesthesia [Unknown]
  - Muscle spasms [Unknown]

NARRATIVE: CASE EVENT DATE: 2009
